FAERS Safety Report 4608326-3 (Version None)
Quarter: 2005Q2

REPORT INFORMATION
  Report Type: 
  Country: None (occurrence: None)
  Receive Date: 20050301
  Receipt Date: 20040414
  Transmission Date: 20051028
  Serious: Yes (Other)
  Sender: FDA-Public Use
  Company Number: BDI-006044

PATIENT
  Age: 26 Year
  Sex: Female

DRUGS (2)
  1. ISOVUE-300 [Suspect]
     Indication: ABDOMINAL PAIN
     Dosage: 100 ML ONCE IV
     Route: 042
     Dates: start: 20040309, end: 20040309
  2. ISOVUE-300 [Suspect]
     Indication: COMPUTERISED TOMOGRAM ABDOMEN
     Dosage: 100 ML ONCE IV
     Route: 042
     Dates: start: 20040309, end: 20040309

REACTIONS (4)
  - ANXIETY [None]
  - DYSPNOEA [None]
  - NAUSEA [None]
  - VOMITING [None]
